FAERS Safety Report 8806314 (Version 1)
Quarter: 2012Q4

REPORT INFORMATION
  Report Type: 
  Country: MX (occurrence: MX)
  Receive Date: 20120925
  Receipt Date: 20120925
  Transmission Date: 20130627
  Serious: Yes (Death)
  Sender: FDA-Public Use
  Company Number: MX-PFIZER INC-2012236123

PATIENT
  Age: 83 Year
  Sex: Male

DRUGS (1)
  1. ALTRULINE [Suspect]
     Indication: DEPRESSION
     Dosage: 50 mg
     Route: 048

REACTIONS (1)
  - Death [Fatal]
